FAERS Safety Report 5494094-2 (Version None)
Quarter: 2007Q4

REPORT INFORMATION
  Report Type: 
  Country: None (occurrence: None)
  Receive Date: 20071022
  Receipt Date: 20071015
  Transmission Date: 20080405
  Serious: Yes (Death, Other)
  Sender: FDA-Public Use
  Company Number: 2007333283

PATIENT
  Age: 52 Year
  Sex: Female

DRUGS (1)
  1. VISINE EYE DROPS [Suspect]
     Dosage: UNSPECIFIED

REACTIONS (1)
  - DRUG TOXICITY [None]
